FAERS Safety Report 8904425 (Version 2)
Quarter: 2012Q4

REPORT INFORMATION
  Report Type: 
  Country: US (occurrence: US)
  Receive Date: 20121110
  Receipt Date: 20121126
  Transmission Date: 20130627
  Serious: No
  Sender: FDA-Public Use
  Company Number: US-009507513-1211USA004166

PATIENT
  Sex: Male
  Weight: 106.6 kg

DRUGS (3)
  1. PEGINTRON [Suspect]
     Indication: HEPATITIS C
     Dosage: 150 Microgram, qw
     Dates: start: 20120510
  2. RIBAVIRIN [Suspect]
  3. CELEXA [Concomitant]

REACTIONS (5)
  - Anger [Unknown]
  - Irritability [Unknown]
  - Drug dose omission [Unknown]
  - No adverse event [Unknown]
  - Product quality issue [Unknown]
